FAERS Safety Report 10030430 (Version 1)
Quarter: 2014Q1

REPORT INFORMATION
  Report Type: Spontaneous
  Country: US (occurrence: US)
  Receive Date: 20140323
  Receipt Date: 20140323
  Transmission Date: 20141002
  Serious: No
  Sender: FDA-Public Use
  Company Number: US-ALLERGAN-1402433US

PATIENT
  Age: 30 Year
  Sex: Female

DRUGS (2)
  1. LATISSE 0.03% [Suspect]
     Indication: PRODUCT USED FOR UNKNOWN INDICATION
     Dosage: 2 GTT, QHS
     Route: 061
  2. ALLERGY EYE DROP NOS [Concomitant]
     Indication: HYPERSENSITIVITY

REACTIONS (1)
  - Eyelid ptosis [Not Recovered/Not Resolved]
